FAERS Safety Report 10475325 (Version 1)
Quarter: 2014Q3

REPORT INFORMATION
  Report Type: Spontaneous
  Country: US (occurrence: None)
  Receive Date: 20140924
  Receipt Date: 20140924
  Transmission Date: 20150326
  Serious: Yes (Disabling)
  Sender: FDA-Public Use
  Company Number: None

PATIENT
  Age: 6 Year
  Sex: Male
  Weight: 24.04 kg

DRUGS (1)
  1. MIRALAX [Suspect]
     Active Substance: POLYETHYLENE GLYCOL 3350
     Indication: CONSTIPATION
     Dosage: 1 CAPFUL
     Route: 048
     Dates: start: 20140115, end: 20140328

REACTIONS (10)
  - Ocular discomfort [None]
  - Headache [None]
  - Mood altered [None]
  - Anger [None]
  - Anxiety [None]
  - Disturbance in attention [None]
  - Insomnia [None]
  - Abnormal behaviour [None]
  - Irritability [None]
  - Tic [None]

NARRATIVE: CASE EVENT DATE: 20140306
